FAERS Safety Report 19472813 (Version 2)
Quarter: 2021Q3

REPORT INFORMATION
  Report Type: Other
  Country: JP (occurrence: JP)
  Receive Date: 20210629
  Receipt Date: 20210703
  Transmission Date: 20211014
  Serious: Yes (Other)
  Sender: FDA-Public Use
  Company Number: JP-ROCHE-2859465

PATIENT
  Age: 6 Decade
  Sex: Male

DRUGS (1)
  1. ACTEMRA [Suspect]
     Active Substance: TOCILIZUMAB
     Indication: CASTLEMAN^S DISEASE
     Route: 058

REACTIONS (1)
  - Pulmonary arterial hypertension [Recovering/Resolving]
